FAERS Safety Report 6757945-7 (Version None)
Quarter: 2010Q2

REPORT INFORMATION
  Report Type: 
  Country: None (occurrence: None)
  Receive Date: 20100607
  Receipt Date: 20100528
  Transmission Date: 20101027
  Serious: Yes (Hospitalization)
  Sender: FDA-Public Use
  Company Number: PT-TEVA-236361ISR

PATIENT
  Age: 47 Year
  Sex: Female
  Weight: 60 kg

DRUGS (4)
  1. OXALIPLATIN [Suspect]
     Route: 042
     Dates: start: 20100215
  2. CETUXIMAB [Concomitant]
     Route: 042
     Dates: start: 20100215
  3. FLUOROURACIL [Concomitant]
     Route: 042
     Dates: start: 20100215
  4. CALCIUM FOLINATE [Concomitant]
     Route: 042
     Dates: start: 20100215

REACTIONS (4)
  - CHOLINERGIC SYNDROME [None]
  - ERYTHEMA [None]
  - FLUSHING [None]
  - PRURITUS [None]
